FAERS Safety Report 4963128-3 (Version None)
Quarter: 2006Q2

REPORT INFORMATION
  Report Type: 
  Country: None (occurrence: None)
  Receive Date: 20060405
  Receipt Date: 20060326
  Transmission Date: 20061013
  Serious: Yes (Other)
  Sender: FDA-Public Use
  Company Number: US-ROCHE-442049

PATIENT
  Age: 58 Year
  Sex: Male

DRUGS (6)
  1. PEGASYS [Suspect]
     Dosage: ROUTE REPORTED AS INJECTABLE.
     Route: 050
     Dates: start: 20060324
  2. REBETOL [Suspect]
     Route: 048
     Dates: start: 20060324, end: 20060325
  3. GLUCOPHAGE [Concomitant]
     Route: 048
  4. ALLEGRA [Concomitant]
     Route: 048
  5. AMOXICILLIN [Concomitant]
     Indication: ORAL INFECTION
     Route: 048
     Dates: start: 20060315
  6. PRINIVIL [Concomitant]

REACTIONS (6)
  - ANAEMIA [None]
  - BLOOD PRESSURE DIASTOLIC DECREASED [None]
  - FALL [None]
  - LOSS OF CONSCIOUSNESS [None]
  - NAUSEA [None]
  - VOMITING [None]
